FAERS Safety Report 7176801-6 (Version None)
Quarter: 2010Q4

REPORT INFORMATION
  Report Type: 
  Country: None (occurrence: None)
  Receive Date: 20101216
  Receipt Date: 20101216
  Transmission Date: 20110411
  Serious: Yes (Disabling, Other)
  Sender: FDA-Public Use
  Company Number: None

PATIENT
  Sex: Female
  Weight: 58.9676 kg

DRUGS (2)
  1. YAZ [Suspect]
     Indication: ACNE
     Dates: start: 20070101, end: 20090201
  2. YAZ [Suspect]
     Indication: CONTRACEPTION
     Dates: start: 20070101, end: 20090201

REACTIONS (1)
  - CONVULSION [None]
